FAERS Safety Report 20748363 (Version 3)
Quarter: 2022Q4

REPORT INFORMATION
  Report Type: Spontaneous
  Country: US (occurrence: US)
  Receive Date: 20220426
  Receipt Date: 20221022
  Transmission Date: 20230113
  Serious: Yes (Hospitalization, Other)
  Sender: FDA-Public Use
  Company Number: US-ABBVIE-22K-163-4341187-00

PATIENT
  Sex: Male

DRUGS (1)
  1. VENCLEXTA [Suspect]
     Active Substance: VENETOCLAX
     Indication: Acute myeloid leukaemia
     Route: 048
     Dates: start: 202010

REACTIONS (7)
  - Brain neoplasm malignant [Unknown]
  - Confusional state [Unknown]
  - Gastrointestinal neoplasm [Unknown]
  - Brain neoplasm [Unknown]
  - Cognitive disorder [Unknown]
  - Balance disorder [Unknown]
  - Mobility decreased [Unknown]
